FAERS Safety Report 6198325-5 (Version None)
Quarter: 2009Q2

REPORT INFORMATION
  Report Type: 
  Country: None (occurrence: None)
  Receive Date: 20090521
  Receipt Date: 20090510
  Transmission Date: 20091009
  Serious: Yes (Other)
  Sender: FDA-Public Use
  Company Number: US-JNJFOC-20090502712

PATIENT
  Sex: Male
  Weight: 14.06 kg

DRUGS (2)
  1. CHILDRENS TYLENOL PLUS FLU BUBBLEGUM [Suspect]
  2. CHILDRENS TYLENOL PLUS FLU BUBBLEGUM [Suspect]
     Indication: PYREXIA

REACTIONS (3)
  - ACCIDENTAL DRUG INTAKE BY CHILD [None]
  - ACCIDENTAL OVERDOSE [None]
  - WRONG DRUG ADMINISTERED [None]
